FAERS Safety Report 19762690 (Version 1)
Quarter: 2021Q3

REPORT INFORMATION
  Report Type: Spontaneous
  Country: US (occurrence: US)
  Receive Date: 20210830
  Receipt Date: 20210830
  Transmission Date: 20211014
  Serious: No
  Sender: FDA-Public Use
  Company Number: US-ASTRAZENECA-2021A675172

PATIENT
  Age: 832 Month
  Sex: Male
  Weight: 152 kg

DRUGS (10)
  1. BP PILL [Concomitant]
  2. VITAMIN [Concomitant]
     Active Substance: VITAMINS
     Indication: EYE DISORDER
  3. METFORMIN [Concomitant]
     Active Substance: METFORMIN HYDROCHLORIDE
  4. TYLENOL PM [Concomitant]
     Active Substance: ACETAMINOPHEN\DIPHENHYDRAMINE
     Dosage: BEFORE BED
  5. BYDUREON BCISE [Suspect]
     Active Substance: EXENATIDE
     Indication: DIABETES MELLITUS
     Route: 058
     Dates: start: 202106
  6. WARFARIN [Concomitant]
     Active Substance: WARFARIN
  7. ASPIRIN. [Concomitant]
     Active Substance: ASPIRIN
  8. REGULAR VITAMIN [Concomitant]
  9. CHOLESTEROL PILL [Concomitant]
     Active Substance: UNSPECIFIED INGREDIENT
  10. HEART PILL PRN [Concomitant]
     Dosage: BEFORE BED

REACTIONS (6)
  - Injection site haemorrhage [Recovered/Resolved]
  - Injection site extravasation [Unknown]
  - Incorrect dose administered by device [Recovered/Resolved]
  - Blood glucose increased [Recovered/Resolved]
  - Vascular injury [Unknown]
  - Device leakage [Unknown]

NARRATIVE: CASE EVENT DATE: 202107
